FAERS Safety Report 9547662 (Version 3)
Quarter: 2013Q4

REPORT INFORMATION
  Report Type: Spontaneous
  Country: US (occurrence: US)
  Receive Date: 20130924
  Receipt Date: 20131021
  Transmission Date: 20140711
  Serious: Yes (Hospitalization)
  Sender: FDA-Public Use
  Company Number: US-UCBSA-017816

PATIENT
  Age: 63 Year
  Sex: Male
  Weight: 108.86 kg

DRUGS (6)
  1. VIMPAT [Suspect]
     Indication: CONVULSION
     Route: 048
     Dates: end: 201008
  2. VIMPAT [Suspect]
     Indication: CONVULSION
     Route: 048
     Dates: start: 201008
  3. VIMPAT [Suspect]
     Indication: CONVULSION
     Dosage: STRENGTH-200MG
  4. KEPPRA XR [Suspect]
     Indication: CONVULSION
     Dosage: STRENGTH:500 MG
  5. VITAMIN D [Concomitant]
     Indication: VITAMIN D DEFICIENCY
     Dosage: 1000 UNITS DAILY
     Route: 048
     Dates: start: 201005
  6. VITAMIN B6 [Concomitant]
     Indication: VITAMIN B6 DEFICIENCY
     Dosage: 100 UNITS DAILY
     Route: 048
     Dates: start: 201005

REACTIONS (2)
  - Convulsion [Unknown]
  - Oxygen consumption decreased [Recovered/Resolved]
